FAERS Safety Report 13487111 (Version 3)
Quarter: 2018Q3

REPORT INFORMATION
  Report Type: Spontaneous
  Country: US (occurrence: US)
  Receive Date: 20170426
  Receipt Date: 20180817
  Transmission Date: 20181010
  Serious: Yes (Other)
  Sender: FDA-Public Use
  Company Number: US-INCYTE CORPORATION-2017IN003003

PATIENT

DRUGS (10)
  1. ASPIRIN                            /00002701/ [Concomitant]
     Active Substance: ASPIRIN
     Indication: PRODUCT USED FOR UNKNOWN INDICATION
     Dosage: 81 MG QOD
  2. LOSARTAN. [Concomitant]
     Active Substance: LOSARTAN
     Indication: PRODUCT USED FOR UNKNOWN INDICATION
     Dosage: 50 MG QD
  3. MULTIVITAMIN                       /07504101/ [Concomitant]
     Active Substance: VITAMINS
     Indication: PRODUCT USED FOR UNKNOWN INDICATION
     Dosage: 1 QD
  4. VITAMIN D                          /00107901/ [Concomitant]
     Active Substance: ERGOCALCIFEROL
     Indication: PRODUCT USED FOR UNKNOWN INDICATION
  5. PROBIOTICS NOS [Concomitant]
     Active Substance: PROBIOTICS NOS
     Indication: PRODUCT USED FOR UNKNOWN INDICATION
     Dosage: PO DAILY
  6. JAKAFI [Suspect]
     Active Substance: RUXOLITINIB
     Dosage: 5 MG ONCE DAILY
     Route: 048
     Dates: start: 201702, end: 201704
  7. JAKAFI [Suspect]
     Active Substance: RUXOLITINIB
     Dosage: 10 MG, BID
     Route: 048
  8. INSULIN GLARGINE [Concomitant]
     Active Substance: INSULIN GLARGINE
     Indication: PRODUCT USED FOR UNKNOWN INDICATION
     Dosage: 28?30 UNITS QHS/ 20 UNITS QHS
  9. JAKAFI [Suspect]
     Active Substance: RUXOLITINIB
     Dosage: 5 MG BID
     Route: 048
     Dates: start: 201704
  10. JAKAFI [Suspect]
     Active Substance: RUXOLITINIB
     Indication: POLYCYTHAEMIA VERA
     Dosage: 5 MG, BID
     Route: 048
     Dates: start: 20151201, end: 20170125

REACTIONS (28)
  - Rectal haemorrhage [Unknown]
  - Eye swelling [Unknown]
  - Hypoaesthesia [Unknown]
  - Splenomegaly [Recovered/Resolved]
  - Vision blurred [Unknown]
  - Stomatitis [Unknown]
  - Diarrhoea [Unknown]
  - Asthenia [Unknown]
  - Erythema [Unknown]
  - Palpitations [Unknown]
  - Faeces discoloured [Unknown]
  - Herpes zoster [Recovered/Resolved]
  - Nasopharyngitis [Unknown]
  - Constipation [Unknown]
  - Malaise [Unknown]
  - Rash [Recovered/Resolved]
  - Insomnia [Unknown]
  - Haematocrit increased [Recovering/Resolving]
  - Nausea [Unknown]
  - Chronic kidney disease [Unknown]
  - Dysphonia [Unknown]
  - Vaginal haemorrhage [Unknown]
  - Headache [Unknown]
  - Bacterial infection [Recovered/Resolved]
  - Swelling face [Unknown]
  - Pollakiuria [Unknown]
  - Fatigue [Unknown]
  - Hypertension [Recovering/Resolving]

NARRATIVE: CASE EVENT DATE: 201512
